FAERS Safety Report 7581415-X (Version None)
Quarter: 2011Q2

REPORT INFORMATION
  Report Type: 
  Country: None (occurrence: None)
  Receive Date: 20110629
  Receipt Date: 20110616
  Transmission Date: 20111010
  Serious: Yes (Other)
  Sender: FDA-Public Use
  Company Number: PHHY2011FR26421

PATIENT
  Sex: Female
  Weight: 60 kg

DRUGS (17)
  1. MODOPAR [Suspect]
     Dosage: 62.5 (UNKNOWN UNITS) PER DAY
  2. MODOPAR [Suspect]
     Dosage: UNK, 62.5 (UNKNOWN UNITS), ONCE DAILY IN THE MORNING
     Dates: start: 20020219
  3. PARLODEL [Suspect]
     Dosage: UNK, 10 (UNKNOWN UNITS), 3 TIMES PER DAY
     Dates: start: 19970908, end: 20030408
  4. MODOPAR [Suspect]
     Dosage: 62.5 (UNKNOWN UNITS) 4 TABLETS PER DAY
  5. ADEPAL [Concomitant]
  6. MODOPAR [Suspect]
     Dosage: UNK, 125 (UNKNOWN UNITS), 4 TIMES PER DAY
     Dates: start: 19971029
  7. MODOPAR [Suspect]
     Indication: PARKINSON'S DISEASE
     Dosage: 250 MG, TID
     Dates: start: 19970908
  8. MOTILIUM [Concomitant]
     Dosage: UNK, 8 TABLETS PER DAY
     Dates: start: 19971029
  9. MODOPAR [Suspect]
     Dosage: 125 LP ONE TABLET AT BEDTIME
  10. PERGOLIDE MESYLATE [Concomitant]
  11. CLONAZEPAM [Concomitant]
     Dosage: 1 DRP, UNK
  12. PAROXETINE HCL [Concomitant]
     Dosage: UNK, IN THE MORNING
  13. PARLODEL [Suspect]
     Indication: PARKINSON'S DISEASE
     Dosage: UNK
     Dates: start: 19950101
  14. MODOPAR [Suspect]
     Dosage: UNK, 250 (UNKNOWN UNITS), 3 TIMES PER DAY
     Dates: start: 20020219
  15. AMITRIPTYLINE HCL [Concomitant]
     Dosage: UNK, DOSE INCREASED
  16. MODOPAR [Suspect]
     Dosage: 125 DISPERSIBLE, 3 TIMES PER DAY
  17. CLONAZEPAM [Concomitant]
     Dosage: UNK, INCREASED TO 7 OR 10 DROPS

REACTIONS (3)
  - ESCHERICHIA URINARY TRACT INFECTION [None]
  - URINARY TRACT INFECTION ENTEROCOCCAL [None]
  - COMPULSIVE SHOPPING [None]
